FAERS Safety Report 8122987-6 (Version None)
Quarter: 2012Q1

REPORT INFORMATION
  Report Type: 
  Country: None (occurrence: None)
  Receive Date: 20120208
  Receipt Date: 20120201
  Transmission Date: 20120608
  Serious: Yes (Other)
  Sender: FDA-Public Use
  Company Number: ZA-PFIZER INC-2012028757

PATIENT
  Age: 50 Year
  Sex: Female

DRUGS (2)
  1. LYRICA [Suspect]
     Indication: PAIN
     Dosage: 75 MG, 2X/DAY
     Route: 048
  2. ESCITALOPRAM [Suspect]
     Indication: ANTIDEPRESSANT THERAPY
     Dosage: UNK

REACTIONS (3)
  - ARTHRALGIA [None]
  - DEPERSONALISATION [None]
  - DRUG INTERACTION [None]
